FAERS Safety Report 7504101-0 (Version None)
Quarter: 2011Q2

REPORT INFORMATION
  Report Type: 
  Country: None (occurrence: None)
  Receive Date: 20110525
  Receipt Date: 20110516
  Transmission Date: 20111010
  Serious: Yes (Hospitalization)
  Sender: FDA-Public Use
  Company Number: US-ABBOTT-10P-163-0645967-00

PATIENT
  Sex: Female

DRUGS (9)
  1. LISINOPRIL [Suspect]
     Indication: PRODUCT USED FOR UNKNOWN INDICATION
  2. ESTRATEST [Concomitant]
     Indication: HORMONE REPLACEMENT THERAPY
     Dosage: 1.25/2.5
  3. CYMBALTA [Concomitant]
     Indication: DEPRESSION
     Dosage: 60MG AND 30 MG BY MOUTH EACH MORNING
  4. HUMIRA [Suspect]
     Indication: CROHN'S DISEASE
     Dates: start: 20090101
  5. LORTAB [Concomitant]
     Indication: PRODUCT USED FOR UNKNOWN INDICATION
     Dosage: 10/325 THREE TIMES A DAY
     Route: 048
  6. ESTRATEST [Concomitant]
     Route: 048
  7. DEXILANT [Concomitant]
     Indication: GASTROOESOPHAGEAL REFLUX DISEASE
     Dosage: 60 MG DAILY
     Route: 048
  8. XANAX [Concomitant]
     Indication: ANXIETY
     Dosage: 1 MG TWO TIMES DAILY
     Route: 048
  9. TRAZODONE HCL [Concomitant]
     Indication: INSOMNIA
     Dosage: 150 MG AT NIGHT AS NEEDED

REACTIONS (10)
  - OEDEMA PERIPHERAL [None]
  - VISUAL IMPAIRMENT [None]
  - SYNCOPE [None]
  - BLOOD CHOLESTEROL INCREASED [None]
  - SENSORY DISTURBANCE [None]
  - HYPERTENSION [None]
  - FATIGUE [None]
  - VISUAL ACUITY REDUCED [None]
  - ABDOMINAL PAIN UPPER [None]
  - LIQUID PRODUCT PHYSICAL ISSUE [None]
